FAERS Safety Report 7346318-4 (Version None)
Quarter: 2011Q1

REPORT INFORMATION
  Report Type: 
  Country: None (occurrence: None)
  Receive Date: 20110311
  Receipt Date: 20110225
  Transmission Date: 20110831
  Serious: Yes (Other)
  Sender: FDA-Public Use
  Company Number: US-RANBAXY-2011US-42827

PATIENT

DRUGS (5)
  1. ISOTRETINOIN [Suspect]
     Indication: ACNE
     Dosage: 30 MG, 2 CAPSULES/ DAY
     Route: 048
     Dates: start: 20060512
  2. CLARAVIS [Suspect]
     Indication: ACNE
     Dosage: 20 MG, 3 CAPSULES QD
     Route: 048
  3. CLARAVIS [Suspect]
     Dosage: 10 MG, 1 CAPSULES QD
     Route: 048
  4. CLARAVIS [Suspect]
     Dosage: 40 MG, 2 CAPSULES QD
     Route: 048
  5. AMNESTEEM [Suspect]
     Indication: ACNE
     Dosage: 40MG, 2 CAPSULES QD
     Route: 048

REACTIONS (10)
  - DEPRESSION [None]
  - WEIGHT DECREASED [None]
  - INSOMNIA [None]
  - MUSCLE SPASMS [None]
  - DIARRHOEA [None]
  - LIP DRY [None]
  - ABDOMINAL PAIN [None]
  - DECREASED APPETITE [None]
  - NAUSEA [None]
  - IRRITABLE BOWEL SYNDROME [None]
